FAERS Safety Report 25857434 (Version 1)
Quarter: 2025Q3

REPORT INFORMATION
  Report Type: Spontaneous
  Country: EU (occurrence: EU)
  Receive Date: 20250929
  Receipt Date: 20250929
  Transmission Date: 20251020
  Serious: Yes (Other)
  Sender: AUROBINDO
  Company Number: EU-AUROBINDO-AUR-APL-2025-047986

PATIENT
  Age: 64 Year
  Sex: Male

DRUGS (12)
  1. LENALIDOMIDE [Suspect]
     Active Substance: LENALIDOMIDE
     Indication: Castleman^s disease
     Route: 065
  2. LENALIDOMIDE [Suspect]
     Active Substance: LENALIDOMIDE
     Indication: POEMS syndrome
  3. SILTUXIMAB [Suspect]
     Active Substance: SILTUXIMAB
     Indication: POEMS syndrome
     Route: 065
  4. SILTUXIMAB [Suspect]
     Active Substance: SILTUXIMAB
     Indication: Castleman^s disease
  5. CYCLOPHOSPHAMIDE [Suspect]
     Active Substance: CYCLOPHOSPHAMIDE
     Indication: POEMS syndrome
     Route: 065
  6. CYCLOPHOSPHAMIDE [Suspect]
     Active Substance: CYCLOPHOSPHAMIDE
     Indication: Castleman^s disease
  7. DOXORUBICIN [Suspect]
     Active Substance: DOXORUBICIN
     Indication: POEMS syndrome
     Route: 065
  8. DOXORUBICIN [Suspect]
     Active Substance: DOXORUBICIN
     Indication: Castleman^s disease
  9. VINCRISTINE [Suspect]
     Active Substance: VINCRISTINE
     Indication: POEMS syndrome
     Route: 065
  10. VINCRISTINE [Suspect]
     Active Substance: VINCRISTINE
     Indication: Castleman^s disease
  11. PREDNISONE [Suspect]
     Active Substance: PREDNISONE
     Indication: POEMS syndrome
     Route: 065
  12. PREDNISONE [Suspect]
     Active Substance: PREDNISONE
     Indication: Castleman^s disease

REACTIONS (1)
  - Drug ineffective [Unknown]
